FAERS Safety Report 7767544-6 (Version None)
Quarter: 2011Q3

REPORT INFORMATION
  Report Type: 
  Country: None (occurrence: None)
  Receive Date: 20110922
  Receipt Date: 20110914
  Transmission Date: 20111222
  Serious: Yes (Other)
  Sender: FDA-Public Use
  Company Number: JP-ASTELLAS-2011JP001992

PATIENT
  Age: 34 Year
  Sex: Female
  Weight: 45 kg

DRUGS (12)
  1. METHYLPREDNISOLONE [Concomitant]
     Dosage: 20 MG, QOD
     Route: 048
     Dates: start: 20080723
  2. FAMOTIDINE [Concomitant]
     Dosage: 20 MG, UNKNOWN/D
     Route: 048
  3. LEVOTHYROXINE SODIUM [Concomitant]
     Dosage: 50 UG, UNKNOWN/D
     Route: 048
  4. METHYLPREDNISOLONE [Concomitant]
     Indication: LUPUS NEPHRITIS
     Dosage: 24 MG, QOD
     Route: 048
     Dates: end: 20080722
  5. ZOLPIDEM [Concomitant]
     Dosage: 5 MG, UNKNOWN/D
     Route: 048
  6. TACROLIMUS [Suspect]
     Dosage: 2 MG, UNKNOWN/D
     Route: 048
     Dates: start: 20081126
  7. BONALEN [Concomitant]
     Dosage: 5 MG, UNKNOWN/D
     Route: 048
  8. ULGUT [Concomitant]
     Dosage: 400 MG, UNKNOWN/D
     Route: 048
  9. MEILAX [Concomitant]
     Dosage: 1 MG, UNKNOWN/D
     Route: 048
  10. TACROLIMUS [Suspect]
     Indication: LUPUS NEPHRITIS
     Dosage: 3 MG, UNKNOWN/D
     Route: 048
     Dates: start: 20080116, end: 20081125
  11. ASPIRIN [Concomitant]
     Dosage: 100 MG, UNKNOWN/D
     Route: 048
  12. ALFAROL [Concomitant]
     Dosage: 0.25 UG, UNKNOWN/D
     Route: 048

REACTIONS (2)
  - BLADDER CANCER [None]
  - UPPER RESPIRATORY TRACT INFLAMMATION [None]
